FAERS Safety Report 22386400 (Version 3)
Quarter: 2023Q2

REPORT INFORMATION
  Report Type: Spontaneous
  Country: ZA (occurrence: ZA)
  Receive Date: 20230531
  Receipt Date: 20230608
  Transmission Date: 20230721
  Serious: Yes (Other)
  Sender: FDA-Public Use
  Company Number: ZA-PFIZER INC-PV202300094455

PATIENT
  Age: 54 Year
  Sex: Female

DRUGS (11)
  1. SULFASALAZINE [Suspect]
     Active Substance: SULFASALAZINE
     Dosage: 1000 MG, 2X/DAY
     Dates: start: 20140715, end: 201411
  2. CHLOROQUINE [Concomitant]
     Active Substance: CHLOROQUINE
     Dosage: 200 MG, DAILY
     Dates: start: 201310
  3. ARCOXIA [Concomitant]
     Active Substance: ETORICOXIB
     Dosage: 90 MG, DAILY
     Dates: start: 201310, end: 2013
  4. ARCOXIA [Concomitant]
     Active Substance: ETORICOXIB
     Dosage: 90 MG, DAILY
     Dates: start: 20131113
  5. METHOTREXATE [Concomitant]
     Active Substance: METHOTREXATE
     Dosage: 15 MG, WEEKLY
     Dates: start: 201310, end: 2013
  6. METHOTREXATE [Concomitant]
     Active Substance: METHOTREXATE
     Dosage: 15 MG, WEEKLY
     Dates: start: 20131113
  7. PREDNISONE [Concomitant]
     Active Substance: PREDNISONE
     Dosage: 10 MG, (4X PER WEEK)
     Dates: start: 201310, end: 2013
  8. PREDNISONE [Concomitant]
     Active Substance: PREDNISONE
     Dosage: 10 MG, (4X PER WEEK)
     Dates: start: 20131113
  9. FOLIC ACID [Concomitant]
     Active Substance: FOLIC ACID
     Dosage: 5 MG, DAILY
     Dates: start: 20131113
  10. CHLOROQUINE [Concomitant]
     Active Substance: CHLOROQUINE
     Dosage: 200 MG, DAILY
     Dates: start: 20131113
  11. ZOLPIDEM TARTRATE [Concomitant]
     Active Substance: ZOLPIDEM TARTRATE
     Dosage: 12.5 MG, DAILY
     Dates: start: 20190912

REACTIONS (6)
  - Shoulder arthroplasty [Unknown]
  - Cervical spinal stenosis [Unknown]
  - Drug intolerance [Unknown]
  - Osteopenia [Unknown]
  - Spinal osteoarthritis [Unknown]
  - Gastrointestinal disorder [Unknown]

NARRATIVE: CASE EVENT DATE: 20180530
